FAERS Safety Report 4727973-1 (Version None)
Quarter: 2005Q3

REPORT INFORMATION
  Report Type: 
  Country: None (occurrence: None)
  Receive Date: 20050725
  Receipt Date: 20050328
  Transmission Date: 20060218
  Serious: No
  Sender: FDA-Public Use
  Company Number: USA050394265

PATIENT
  Age: 49 Year
  Sex: Female

DRUGS (3)
  1. STRATTERA [Suspect]
     Indication: ATTENTION DEFICIT/HYPERACTIVITY DISORDER
     Dosage: 40 MG DAY
     Dates: start: 20050314
  2. RITALIN [Concomitant]
  3. ZOLOFT [Concomitant]

REACTIONS (3)
  - EYE SWELLING [None]
  - FATIGUE [None]
  - FEELING ABNORMAL [None]
